FAERS Safety Report 25669300 (Version 2)
Quarter: 2025Q3

REPORT INFORMATION
  Report Type: Spontaneous
  Country: VN (occurrence: VN)
  Receive Date: 20250812
  Receipt Date: 20250818
  Transmission Date: 20251020
  Serious: Yes (Hospitalization)
  Sender: ACCORD
  Company Number: VN-MLMSERVICE-20250725-PI590705-00052-1

PATIENT
  Age: 42 Year
  Sex: Male
  Weight: 65 kg

DRUGS (6)
  1. ESOMEPRAZOLE [Suspect]
     Active Substance: ESOMEPRAZOLE
     Indication: Helicobacter infection
     Route: 048
     Dates: start: 20250405
  2. AERIUS (DESLORATADINE) [Suspect]
     Active Substance: DESLORATADINE
     Indication: Helicobacter infection
     Route: 048
     Dates: start: 20250409
  3. AMOXICILLIN [Suspect]
     Active Substance: AMOXICILLIN
     Indication: Helicobacter infection
     Route: 048
     Dates: start: 20250409
  4. PROBIOTICS NOS [Suspect]
     Active Substance: PROBIOTICS NOS
     Indication: Helicobacter infection
     Dosage: DOSE: 2DF?2 VIALS OD
     Route: 048
     Dates: start: 20250409
  5. BISMUTH OXIDE [Suspect]
     Active Substance: BISMUTH OXIDE
     Indication: Helicobacter infection
     Dosage: DOSE: 2DF
     Route: 048
     Dates: start: 20250409
  6. LEVOFLOXACIN [Suspect]
     Active Substance: LEVOFLOXACIN
     Indication: Helicobacter infection
     Route: 048
     Dates: start: 20250409

REACTIONS (13)
  - Capillary permeability increased [Recovered/Resolved]
  - Hypersensitivity [Recovered/Resolved]
  - Hyponatraemia [Recovered/Resolved]
  - Hypoalbuminaemia [Recovered/Resolved]
  - Normochromic normocytic anaemia [Recovered/Resolved]
  - Lung infiltration [Recovered/Resolved]
  - Cardiomegaly [Recovered/Resolved]
  - Capillary leak syndrome [Recovered/Resolved]
  - Polyserositis [Recovered/Resolved]
  - Ascites [Recovered/Resolved]
  - Oedema peripheral [Recovered/Resolved]
  - Pleural effusion [Recovered/Resolved]
  - Pericardial effusion [Recovered/Resolved]
